FAERS Safety Report 9136386 (Version 1)
Quarter: 2013Q1

REPORT INFORMATION
  Report Type: Spontaneous
  Country: US (occurrence: US)
  Receive Date: 20130219
  Receipt Date: 20130219
  Transmission Date: 20140127
  Serious: No
  Sender: FDA-Public Use
  Company Number: US-BRISTOL-MYERS SQUIBB COMPANY-16531113

PATIENT
  Age: 57 Year
  Sex: Female
  Weight: 77.1 kg

DRUGS (3)
  1. ORENCIA [Suspect]
     Dosage: 16-APR-2012: FIRST DOSE
     Route: 042
     Dates: start: 20120416
  2. PREDNISONE [Concomitant]
  3. ATENOLOL [Concomitant]

REACTIONS (1)
  - Arthralgia [Not Recovered/Not Resolved]
